FAERS Safety Report 19383522 (Version 1)
Quarter: 2021Q2

REPORT INFORMATION
  Report Type: Report from Study
  Country: None (occurrence: GR)
  Receive Date: 20210608
  Receipt Date: 20210608
  Transmission Date: 20210717
  Serious: Yes (Death)
  Sender: FDA-Public Use
  Company Number: GR-ABBVIE-21K-066-3938467-00

PATIENT
  Age: 76 Year
  Sex: Female
  Weight: 53 kg

DRUGS (13)
  1. DUODOPA [Suspect]
     Active Substance: CARBIDOPA\LEVODOPA
  2. ZOMARIST [Concomitant]
     Indication: PRODUCT USED FOR UNKNOWN INDICATION
     Dosage: TWICE OF UNKNOWN UNIT DOSE
     Route: 048
  3. NEUPRO [Concomitant]
     Active Substance: ROTIGOTINE
     Indication: NIGHTMARE
     Route: 062
  4. LIPOSIC [Concomitant]
     Active Substance: CARBOMER
     Indication: PRODUCT USED FOR UNKNOWN INDICATION
     Dosage: DROPS OF UNKNOWN UNIT DOSE
  5. AKINETON [Concomitant]
     Active Substance: BIPERIDEN HYDROCHLORIDE
     Indication: PRODUCT USED FOR UNKNOWN INDICATION
     Route: 048
  6. EUCREAS [Concomitant]
     Active Substance: METFORMIN HYDROCHLORIDE\VILDAGLIPTIN
     Indication: TYPE 2 DIABETES MELLITUS
     Route: 048
  7. MARIPRAX [Concomitant]
     Indication: PARKINSON^S DISEASE
     Route: 048
  8. NEUPRO [Concomitant]
     Active Substance: ROTIGOTINE
     Indication: ABNORMAL DREAMS
  9. DUODOPA [Suspect]
     Active Substance: CARBIDOPA\LEVODOPA
     Indication: PARKINSON^S DISEASE
     Dosage: MORNING DOSE: 10.0 ML; CONTINUOUS RATE: 3.1 ML/H; EXTRA DOSE: 1.0 ML
     Route: 050
     Dates: start: 20190903
  10. GLICRON [Concomitant]
     Indication: TYPE 2 DIABETES MELLITUS
     Route: 048
  11. T4 [Concomitant]
     Active Substance: LEVOTHYROXINE
     Indication: HYPOTHYROIDISM
     Route: 048
  12. MICROFER [Concomitant]
     Indication: CHRONIC LYMPHOCYTIC LEUKAEMIA
     Route: 048
  13. LAPRAZOL [Concomitant]
     Active Substance: LANSOPRAZOLE
     Indication: PRODUCT USED FOR UNKNOWN INDICATION
     Route: 048

REACTIONS (1)
  - Cardiac arrest [Fatal]
